FAERS Safety Report 9492317 (Version 1)
Quarter: 2013Q3

REPORT INFORMATION
  Report Type: Spontaneous
  Country: KR (occurrence: KR)
  Receive Date: 20130830
  Receipt Date: 20130830
  Transmission Date: 20140515
  Serious: Yes (Other)
  Sender: FDA-Public Use
  Company Number: PHHY2013KR092671

PATIENT
  Age: 58 Year
  Sex: Female

DRUGS (3)
  1. RIBAVIRIN [Suspect]
     Dosage: 400 MG, BID
     Route: 048
  2. PEGINTERFERON ALFA-2B [Suspect]
     Dosage: 80 UG, WEEKLY
     Route: 058
  3. AMLODIPINE [Concomitant]
     Indication: HYPERTENSION
     Dosage: 5 MG

REACTIONS (7)
  - Vogt-Koyanagi-Harada syndrome [Recovering/Resolving]
  - Vision blurred [Recovering/Resolving]
  - Headache [Unknown]
  - Vitiligo [Unknown]
  - Uveitis [Recovering/Resolving]
  - Retinal oedema [Recovering/Resolving]
  - Retinal detachment [Recovered/Resolved]
